FAERS Safety Report 15325151 (Version 2)
Quarter: 2018Q3

REPORT INFORMATION
  Report Type: Spontaneous
  Country: AU (occurrence: AU)
  Receive Date: 20180828
  Receipt Date: 20180906
  Transmission Date: 20181010
  Serious: Yes (Other)
  Sender: FDA-Public Use
  Company Number: AU-THROMBOGENICS NV-SPO-2018-2558

PATIENT

DRUGS (1)
  1. JETREA [Suspect]
     Active Substance: OCRIPLASMIN
     Indication: PRODUCT USED FOR UNKNOWN INDICATION
     Dosage: 0.125 MG, ONE TIME DOSE
     Route: 031
     Dates: start: 20180614, end: 20180614

REACTIONS (3)
  - Non-infectious endophthalmitis [Unknown]
  - Corneal oedema [Unknown]
  - Visual acuity reduced [Unknown]
